FAERS Safety Report 15728821 (Version 1)
Quarter: 2018Q4

REPORT INFORMATION
  Report Type: Spontaneous
  Country: US (occurrence: US)
  Receive Date: 20181217
  Receipt Date: 20181217
  Transmission Date: 20190205
  Serious: No
  Sender: FDA-Public Use
  Company Number: US-009507513-1811USA009166

PATIENT
  Age: 17 Year
  Sex: Female
  Weight: 89.8 kg

DRUGS (1)
  1. NEXPLANON [Suspect]
     Active Substance: ETONOGESTREL
     Indication: CONTRACEPTION
     Dosage: 1 IMPLANT, EVERY 3 YEARS, IN LEFT ARM
     Route: 059
     Dates: start: 20171130

REACTIONS (3)
  - Menometrorrhagia [Not Recovered/Not Resolved]
  - Amenorrhoea [Recovered/Resolved]
  - Menstrual disorder [Not Recovered/Not Resolved]

NARRATIVE: CASE EVENT DATE: 20171130
